FAERS Safety Report 24667458 (Version 1)
Quarter: 2024Q4

REPORT INFORMATION
  Report Type: Spontaneous
  Country: US (occurrence: US)
  Receive Date: 20241126
  Receipt Date: 20241126
  Transmission Date: 20250115
  Serious: No
  Sender: ELI LILLY AND COMPANY
  Company Number: US-ELI_LILLY_AND_COMPANY-US202411016170

PATIENT
  Age: 52 Year
  Sex: Male

DRUGS (1)
  1. EBGLYSS [Suspect]
     Active Substance: LEBRIKIZUMAB-LBKZ
     Indication: Product used for unknown indication
     Dosage: UNK UNK, UNKNOWN
     Route: 065
     Dates: start: 20241115

REACTIONS (4)
  - Abdominal pain upper [Recovering/Resolving]
  - Asthenia [Unknown]
  - Ageusia [Unknown]
  - Eczema [Unknown]

NARRATIVE: CASE EVENT DATE: 20241122
